FAERS Safety Report 9536388 (Version 2)
Quarter: 2013Q3

REPORT INFORMATION
  Report Type: Spontaneous
  Country: US (occurrence: US)
  Receive Date: 20130919
  Receipt Date: 20130919
  Transmission Date: 20140515
  Serious: Yes (Life-Threatening)
  Sender: FDA-Public Use
  Company Number: US-JNJFOC-20130812839

PATIENT
  Age: 16 Year
  Sex: Female
  Weight: 100.8 kg

DRUGS (2)
  1. REMICADE [Suspect]
     Indication: CROHN^S DISEASE
     Dosage: HAD 5 INFUSIONS.
     Route: 042
     Dates: start: 201303
  2. REMICADE [Suspect]
     Indication: CROHN^S DISEASE
     Dosage: HAD 5 INFUSIONS.
     Route: 042
     Dates: start: 20130717, end: 20130717

REACTIONS (6)
  - Antibody test positive [Unknown]
  - Feeling hot [Recovered/Resolved]
  - Throat tightness [Recovered/Resolved]
  - Dyspnoea [Recovered/Resolved]
  - Paraesthesia oral [Recovered/Resolved]
  - Infusion related reaction [Recovered/Resolved]
